FAERS Safety Report 18103706 (Version 1)
Quarter: 2020Q3

REPORT INFORMATION
  Report Type: Spontaneous
  Country: US (occurrence: US)
  Receive Date: 20200731
  Receipt Date: 20200731
  Transmission Date: 20201103
  Serious: Yes (Life-Threatening, Other)
  Sender: FDA-Public Use
  Company Number: None

PATIENT
  Age: 30 Year
  Sex: Female
  Weight: 96.75 kg

DRUGS (1)
  1. CYTOTEC [Suspect]
     Active Substance: MISOPROSTOL
     Indication: INDUCTION OF CERVIX RIPENING
     Dosage: ?          QUANTITY:2 TABLET(S);OTHER FREQUENCY:TWO DOSES;?
     Route: 067
     Dates: start: 20200726, end: 20200726

REACTIONS (5)
  - Drug ineffective [None]
  - Uterine hyperstimulation [None]
  - Maternal exposure during pregnancy [None]
  - Tremor [None]
  - Heart rate increased [None]

NARRATIVE: CASE EVENT DATE: 20200726
